FAERS Safety Report 14660497 (Version 1)
Quarter: 2018Q1

REPORT INFORMATION
  Report Type: Spontaneous
  Country: US (occurrence: US)
  Receive Date: 20180317
  Receipt Date: 20180317
  Transmission Date: 20180509
  Serious: Yes (Disabling, Other)
  Sender: FDA-Public Use
  Company Number: None

PATIENT
  Age: 59 Year
  Sex: Male
  Weight: 106.65 kg

DRUGS (5)
  1. EQUATE BRAND HEADACHE RELIEF TABLETS [Concomitant]
  2. CLOR-TABS [Concomitant]
  3. VITAMIN D [Concomitant]
     Active Substance: CHOLECALCIFEROL
  4. BENADRYL [Concomitant]
     Active Substance: DIPHENHYDRAMINE HYDROCHLORIDE
  5. PAIN RELIEVER PLUS [Suspect]
     Active Substance: ACETAMINOPHEN\ASPIRIN\CAFFEINE
     Indication: PAIN
     Dosage: ?          QUANTITY:2 TABLET(S);?
     Route: 048
     Dates: start: 20180309, end: 20180310

REACTIONS (8)
  - Chromaturia [None]
  - Increased viscosity of bronchial secretion [None]
  - Gastrooesophageal reflux disease [None]
  - Fatigue [None]
  - Urine odour abnormal [None]
  - Nausea [None]
  - Diarrhoea [None]
  - Abdominal pain [None]

NARRATIVE: CASE EVENT DATE: 20180310
